FAERS Safety Report 9197346 (Version 1)
Quarter: 2013Q1

REPORT INFORMATION
  Report Type: Spontaneous
  Country: US (occurrence: US)
  Receive Date: 20130328
  Receipt Date: 20130328
  Transmission Date: 20140127
  Serious: Yes (Death)
  Sender: FDA-Public Use
  Company Number: US-PFIZER INC-HQWYE305803NOV06

PATIENT
  Age: 18 Year
  Sex: 0

DRUGS (4)
  1. IBUPROFEN [Suspect]
     Indication: SUICIDE ATTEMPT
     Route: 048
  2. ESCITALOPRAM OXALATE [Suspect]
     Dosage: UNKNOWN
     Route: 048
  3. PSEUDOEPHEDRINE HYDROCHLORIDE [Suspect]
     Dosage: UNKNOWN
     Route: 048
  4. ACETAMINOPHEN W/CODEINE [Suspect]
     Dosage: UNKNOWN
     Route: 048

REACTIONS (1)
  - Intentional overdose [Fatal]
